FAERS Safety Report 6748440-X (Version None)
Quarter: 2010Q2

REPORT INFORMATION
  Report Type: 
  Country: None (occurrence: None)
  Receive Date: 20100527
  Receipt Date: 20100527
  Transmission Date: 20101027
  Serious: Yes (Life-Threatening)
  Sender: FDA-Public Use
  Company Number: None

PATIENT
  Age: 36 Year
  Sex: Female
  Weight: 90.2658 kg

DRUGS (1)
  1. COLGATE [Suspect]
     Indication: DENTAL DISORDER PROPHYLAXIS
     Dosage: DIME SIZE OR SMALLERR 2 TIMES PO
     Route: 048
     Dates: start: 20100524, end: 20100525

REACTIONS (9)
  - DRUG HYPERSENSITIVITY [None]
  - FEELING HOT [None]
  - GINGIVAL PAIN [None]
  - GINGIVITIS [None]
  - HYPOAESTHESIA ORAL [None]
  - INFLAMMATION [None]
  - LIP PAIN [None]
  - ORAL PAIN [None]
  - PALATAL DISORDER [None]
